FAERS Safety Report 19439211 (Version 1)
Quarter: 2021Q2

REPORT INFORMATION
  Report Type: Spontaneous
  Country: GB (occurrence: GB)
  Receive Date: 20210619
  Receipt Date: 20210619
  Transmission Date: 20210717
  Serious: Yes (Death, Hospitalization)
  Sender: FDA-Public Use
  Company Number: GB-ADVANZ PHARMA-202106004292

PATIENT

DRUGS (2)
  1. PREDNESOL 5MG TABLETS,SOLUBLE PREDNISOLONE 5MG TABLETS [Suspect]
     Active Substance: PREDNISOLONE SODIUM PHOSPHATE
     Dosage: 7 MG
     Dates: start: 202102
  2. PREDNESOL 5MG TABLETS,SOLUBLE PREDNISOLONE 5MG TABLETS [Suspect]
     Active Substance: PREDNISOLONE SODIUM PHOSPHATE
     Indication: MYALGIA
     Dosage: 15 MG
     Dates: start: 202009

REACTIONS (6)
  - Confusional state [Fatal]
  - Conversion disorder [Fatal]
  - General physical health deterioration [Fatal]
  - Head discomfort [Fatal]
  - Memory impairment [Fatal]
  - Agitation [Fatal]

NARRATIVE: CASE EVENT DATE: 20210228
